FAERS Safety Report 20443312 (Version 1)
Quarter: 2022Q1

REPORT INFORMATION
  Report Type: Spontaneous
  Country: US (occurrence: None)
  Receive Date: 20220207
  Receipt Date: 20220207
  Transmission Date: 20220423
  Serious: Yes (Other)
  Sender: FDA-Public Use
  Company Number: None

PATIENT
  Age: 52 Year
  Sex: Female
  Weight: 99.3 kg

DRUGS (1)
  1. TIROSINT [Suspect]
     Active Substance: LEVOTHYROXINE SODIUM
     Indication: Autoimmune thyroiditis
     Dosage: FREQUENCY : DAILY;?
     Route: 048
     Dates: start: 20210519, end: 20211109

REACTIONS (6)
  - Palpitations [None]
  - Myalgia [None]
  - Insomnia [None]
  - Rash [None]
  - Oedema [None]
  - Peripheral coldness [None]

NARRATIVE: CASE EVENT DATE: 20210614
